FAERS Safety Report 13869358 (Version 6)
Quarter: 2019Q3

REPORT INFORMATION
  Report Type: Report from Study
  Country: CA (occurrence: CA)
  Receive Date: 20170815
  Receipt Date: 20190805
  Transmission Date: 20191004
  Serious: Yes (Other)
  Sender: FDA-Public Use
  Company Number: CA-OTSUKA-2016_021290

PATIENT
  Age: 48 Year
  Sex: Male
  Weight: 111 kg

DRUGS (10)
  1. TWYNSTA [Concomitant]
     Active Substance: AMLODIPINE BESYLATE\TELMISARTAN
     Indication: PRODUCT USED FOR UNKNOWN INDICATION
     Dosage: 1 DF (80/10 MG), QD
     Route: 065
  2. TOLVAPTAN [Suspect]
     Active Substance: TOLVAPTAN
     Indication: CONGENITAL CYSTIC KIDNEY DISEASE
     Dosage: 45 MG, QD (IN MORNING)
     Route: 048
     Dates: start: 20160830, end: 20161217
  3. TOLVAPTAN [Suspect]
     Active Substance: TOLVAPTAN
     Dosage: 15, QD (IN EVENING)
     Route: 048
     Dates: start: 201612
  4. TOLVAPTAN [Suspect]
     Active Substance: TOLVAPTAN
     Dosage: 15 MG, QD
     Route: 048
     Dates: start: 20190726
  5. TOLVAPTAN [Suspect]
     Active Substance: TOLVAPTAN
     Dosage: 15 MG, QD (IN EVENING)
     Route: 048
     Dates: start: 201412, end: 201605
  6. TOLVAPTAN [Suspect]
     Active Substance: TOLVAPTAN
     Dosage: 22.5 MG, QD
     Route: 048
     Dates: end: 20190726
  7. TOLVAPTAN [Suspect]
     Active Substance: TOLVAPTAN
     Dosage: 22.5 MG, QD
     Route: 048
     Dates: start: 20190726
  8. TOLVAPTAN [Suspect]
     Active Substance: TOLVAPTAN
     Dosage: 45 MG, QD (IN MORNING)
     Route: 048
     Dates: start: 201412, end: 201605
  9. TOLVAPTAN [Suspect]
     Active Substance: TOLVAPTAN
     Dosage: 22.5 MG, QD (IN EVENING)
     Route: 048
     Dates: start: 201612
  10. TERAZOSIN [Concomitant]
     Active Substance: TERAZOSIN HYDROCHLORIDE
     Indication: BLOOD PRESSURE ABNORMAL
     Dosage: 1 MG, BID (STRENGTH: 2 MG, 1/2 TAB)
     Route: 065

REACTIONS (17)
  - Renal impairment [Recovered/Resolved]
  - Blood creatinine increased [Recovered/Resolved]
  - Thirst [Not Recovered/Not Resolved]
  - Treatment noncompliance [Unknown]
  - Pollakiuria [Not Recovered/Not Resolved]
  - Weight decreased [Recovered/Resolved]
  - Aspartate aminotransferase increased [Unknown]
  - Nocturia [Not Recovered/Not Resolved]
  - Alanine aminotransferase increased [Unknown]
  - Product dose omission [Unknown]
  - Incorrect dose administered [Unknown]
  - Glomerular filtration rate decreased [Recovered/Resolved]
  - Dehydration [Unknown]
  - Panic reaction [Recovered/Resolved]
  - Polyuria [Not Recovered/Not Resolved]
  - Product prescribing error [Unknown]
  - Off label use [Unknown]

NARRATIVE: CASE EVENT DATE: 20160830
